FAERS Safety Report 24696794 (Version 1)
Quarter: 2024Q4

REPORT INFORMATION
  Report Type: Spontaneous
  Country: CN (occurrence: CN)
  Receive Date: 20241204
  Receipt Date: 20241204
  Transmission Date: 20250114
  Serious: Yes (Life-Threatening, Other)
  Sender: TAKEDA
  Company Number: CN-TAKEDA-2024TUS119694

PATIENT
  Age: 60 Year
  Sex: Female

DRUGS (2)
  1. FRUQUINTINIB [Suspect]
     Active Substance: FRUQUINTINIB
     Indication: Product used for unknown indication
     Dosage: 5 MILLIGRAM
  2. TISLELIZUMAB [Suspect]
     Active Substance: TISLELIZUMAB
     Indication: Product used for unknown indication
     Dosage: 200 MILLIGRAM

REACTIONS (2)
  - Glomerulonephritis [Unknown]
  - Renal-limited thrombotic microangiopathy [Unknown]
